FAERS Safety Report 9989763 (Version 1)
Quarter: 2014Q1

REPORT INFORMATION
  Report Type: Report from Study
  Country: US (occurrence: US)
  Receive Date: 20140310
  Receipt Date: 20140310
  Transmission Date: 20141002
  Serious: No
  Sender: FDA-Public Use
  Company Number: US-ABBVIE-13P-163-1130865-00

PATIENT
  Age: 59 Year
  Sex: Female
  Weight: 56.75 kg

DRUGS (15)
  1. HUMIRA [Suspect]
     Indication: RHEUMATOID ARTHRITIS
     Dates: start: 201306
  2. CYMBALTA [Concomitant]
     Indication: NEURALGIA
  3. CYMBALTA [Concomitant]
     Indication: ANXIETY
  4. LEFLUNOMIDE [Concomitant]
     Indication: RHEUMATOID ARTHRITIS
  5. CRESTOR [Concomitant]
     Indication: BLOOD CHOLESTEROL INCREASED
  6. LOVAZA [Concomitant]
     Indication: BLOOD CHOLESTEROL INCREASED
  7. ACTONEL [Concomitant]
     Indication: OSTEOPOROSIS
  8. PREMARIN [Concomitant]
     Indication: VULVOVAGINAL DRYNESS
  9. RANITIDINE [Concomitant]
     Indication: GASTROOESOPHAGEAL REFLUX DISEASE
  10. ONE A DAY [Concomitant]
     Indication: VITAMIN SUPPLEMENTATION
  11. CALCIUM [Concomitant]
     Indication: VITAMIN SUPPLEMENTATION
  12. VITAMIN D NOS [Concomitant]
     Indication: VITAMIN SUPPLEMENTATION
  13. VITAMIN C [Concomitant]
     Indication: VITAMIN SUPPLEMENTATION
  14. SUBER B COMPLEX [Concomitant]
     Indication: VITAMIN SUPPLEMENTATION
  15. OSTEO BI-FLEX [Concomitant]
     Indication: VITAMIN SUPPLEMENTATION

REACTIONS (2)
  - Oral mucosal blistering [Recovered/Resolved]
  - Rheumatoid arthritis [Not Recovered/Not Resolved]
